FAERS Safety Report 19253234 (Version 4)
Quarter: 2022Q1

REPORT INFORMATION
  Report Type: Report from Study
  Country: FR (occurrence: FR)
  Receive Date: 20210513
  Receipt Date: 20220217
  Transmission Date: 20220424
  Serious: No
  Sender: FDA-Public Use
  Company Number: FR-BRISTOL-MYERS SQUIBB COMPANY-BMS-2021-044818

PATIENT
  Age: 46 Year
  Sex: Male

DRUGS (2)
  1. NIVOLUMAB [Suspect]
     Active Substance: NIVOLUMAB
     Indication: Renal cancer metastatic
     Dosage: EVERY 21 DAYS
     Route: 042
     Dates: start: 20210319, end: 20210409
  2. IPILIMUMAB [Suspect]
     Active Substance: IPILIMUMAB
     Indication: Renal cancer metastatic
     Dosage: EVERY 21 DAYS
     Route: 042
     Dates: start: 20210319, end: 20210409

REACTIONS (1)
  - No adverse event [Unknown]
